FAERS Safety Report 7351765-0 (Version None)
Quarter: 2011Q1

REPORT INFORMATION
  Report Type: 
  Country: None (occurrence: None)
  Receive Date: 20110315
  Receipt Date: 20110303
  Transmission Date: 20110831
  Serious: Yes (Hospitalization)
  Sender: FDA-Public Use
  Company Number: CA-JNJFOC-20110208391

PATIENT
  Sex: Female
  Weight: 76 kg

DRUGS (3)
  1. METHOTREXATE [Concomitant]
     Route: 048
  2. FOLIC ACID [Concomitant]
  3. REMICADE [Suspect]
     Indication: RHEUMATOID ARTHRITIS
     Route: 042

REACTIONS (3)
  - KNEE ARTHROPLASTY [None]
  - ARTHRITIS INFECTIVE [None]
  - INJECTION SITE INFECTION [None]
